FAERS Safety Report 9314301 (Version 1)
Quarter: 2013Q2

REPORT INFORMATION
  Report Type: Report from Study
  Country: DE (occurrence: DE)
  Receive Date: 20130529
  Receipt Date: 20130529
  Transmission Date: 20140414
  Serious: Yes (Other)
  Sender: FDA-Public Use
  Company Number: PHHY2013DE052617

PATIENT
  Sex: Male
  Weight: 85 kg

DRUGS (6)
  1. GLYCOPYRRONIUM BROMIDE [Suspect]
     Indication: CHRONIC OBSTRUCTIVE PULMONARY DISEASE
     Dosage: 44 UG, QD
     Dates: start: 20130131, end: 20130319
  2. FORADIL P [Suspect]
     Indication: CHRONIC OBSTRUCTIVE PULMONARY DISEASE
     Dosage: 12 UG, BID
     Dates: start: 20130501, end: 20130514
  3. ASS AL [Concomitant]
  4. CARVEDILOL AL [Concomitant]
  5. RAMIPRIL AL [Concomitant]
  6. SALBU EASYHALER [Concomitant]

REACTIONS (4)
  - Hypertensive crisis [Recovered/Resolved]
  - Blood pressure systolic increased [Recovered/Resolved]
  - Dizziness [Recovered/Resolved]
  - Dysphonia [Unknown]
